FAERS Safety Report 25310065 (Version 3)
Quarter: 2025Q2

REPORT INFORMATION
  Report Type: Report from Study
  Country: US (occurrence: US)
  Receive Date: 20250514
  Receipt Date: 20250627
  Transmission Date: 20250716
  Serious: Yes (Other)
  Sender: BIOGEN
  Company Number: US-BIOGEN-2025BI01310590

PATIENT
  Age: 64 Year
  Sex: Female
  Weight: 80.3 kg

DRUGS (15)
  1. VUMERITY [Suspect]
     Active Substance: DIROXIMEL FUMARATE
     Indication: Multiple sclerosis
     Dosage: TAKE 2 CAPSULES (462MG) BY MOUTH TWICE DAILY.
     Route: 050
     Dates: start: 2021
  2. LISINOPRIL [Concomitant]
     Active Substance: LISINOPRIL
     Indication: Product used for unknown indication
     Route: 050
  3. ASPIRIN [Concomitant]
     Active Substance: ASPIRIN
     Indication: Product used for unknown indication
     Route: 050
  4. D2000 ULTRA STRENGTH [Concomitant]
     Indication: Product used for unknown indication
     Route: 050
  5. D2000 ULTRA STRENGTH [Concomitant]
     Route: 050
  6. CARBIDOPA / LEVODOPA ER [Concomitant]
     Indication: Product used for unknown indication
     Route: 050
  7. CARBIDOPA / LEVODOPA ER [Concomitant]
     Dosage: CARBIDOPA 10 MG AND LEVODOPA 100 MG
     Route: 050
  8. CALCIUM/ VITAMIN D [Concomitant]
     Indication: Product used for unknown indication
     Route: 050
  9. CALCIUM/ VITAMIN D [Concomitant]
     Route: 050
  10. ATORVASTATIN CALCIUM [Concomitant]
     Active Substance: ATORVASTATIN CALCIUM
     Indication: Product used for unknown indication
     Route: 050
  11. ATORVASTATIN CALCIUM [Concomitant]
     Active Substance: ATORVASTATIN CALCIUM
     Route: 050
  12. CALCIUM AS CARBONATE and VITAMIN D3 [Concomitant]
     Indication: Product used for unknown indication
     Dosage: CALCIUM 500 MG AS CARBONATE AND VITAMIN D3 25 MCG  -1000 UNITS CAPSULE
     Route: 050
  13. CALCIUM AS CARBONATE and VITAMIN D3 [Concomitant]
     Route: 050
  14. MULTIVITAMIN FERROUS FUMARATE FOLLIC ACID [Concomitant]
     Indication: Product used for unknown indication
     Dosage: 10 MG-400 MCG TABLET
     Route: 050
  15. VITAMIN D3 [Concomitant]
     Active Substance: CHOLECALCIFEROL
     Indication: Product used for unknown indication
     Dosage: (2000 UNITS)
     Route: 050

REACTIONS (1)
  - Intraductal proliferative breast lesion [Unknown]

NARRATIVE: CASE EVENT DATE: 20250301
